FAERS Safety Report 24730130 (Version 2)
Quarter: 2024Q4

REPORT INFORMATION
  Report Type: Report from Study
  Country: US (occurrence: US)
  Receive Date: 20241213
  Receipt Date: 20241231
  Transmission Date: 20250114
  Serious: Yes (Hospitalization, Other)
  Sender: TAKEDA
  Company Number: US-TAKEDA-2024TUS094199

PATIENT
  Age: 77 Year
  Sex: Female

DRUGS (5)
  1. BRIGATINIB [Suspect]
     Active Substance: BRIGATINIB
     Indication: Lung neoplasm malignant
     Dosage: 60 MILLIGRAM, QD
     Dates: start: 20240923
  2. BRIGATINIB [Suspect]
     Active Substance: BRIGATINIB
     Dosage: 120 MILLIGRAM
  3. BRIGATINIB [Suspect]
     Active Substance: BRIGATINIB
     Dosage: 60 MILLIGRAM, QD
  4. BRIGATINIB [Suspect]
     Active Substance: BRIGATINIB
     Dosage: 120 MILLIGRAM, QD
  5. BRIGATINIB [Suspect]
     Active Substance: BRIGATINIB
     Dosage: 60 MILLIGRAM, QD

REACTIONS (13)
  - Ventricular fibrillation [Unknown]
  - Atrial fibrillation [Unknown]
  - Hepatic enzyme increased [Recovered/Resolved]
  - Sinus disorder [Unknown]
  - Oxygen saturation decreased [Unknown]
  - Product distribution issue [Unknown]
  - Incorrect dose administered [Unknown]
  - Product use issue [Unknown]
  - Urinary tract infection [Unknown]
  - Fatigue [Unknown]
  - Diarrhoea [Recovered/Resolved]
  - Dyspnoea [Unknown]
  - Asthenia [Unknown]

NARRATIVE: CASE EVENT DATE: 20241012
